FAERS Safety Report 6707000-7 (Version None)
Quarter: 2010Q2

REPORT INFORMATION
  Report Type: 
  Country: None (occurrence: None)
  Receive Date: 20100503
  Receipt Date: 20100422
  Transmission Date: 20101027
  Serious: Yes (Hospitalization)
  Sender: FDA-Public Use
  Company Number: IT-GENZYME-POMP-1000886

PATIENT
  Sex: Male

DRUGS (1)
  1. MYOZYME [Suspect]
     Indication: GLYCOGEN STORAGE DISEASE TYPE II
     Dosage: 150 MG, QW
     Route: 042
     Dates: start: 20090514

REACTIONS (3)
  - DRUG INEFFECTIVE [None]
  - HYPOTONIA [None]
  - RESPIRATORY DISORDER [None]
